FAERS Safety Report 15606617 (Version 1)
Quarter: 2018Q4

REPORT INFORMATION
  Report Type: Spontaneous
  Country: US (occurrence: US)
  Receive Date: 20181112
  Receipt Date: 20181112
  Transmission Date: 20190205
  Serious: No
  Sender: FDA-Public Use
  Company Number: US-SUNOVION-2018SUN004337

PATIENT
  Weight: 74.38 kg

DRUGS (8)
  1. LEVAQUIN [Concomitant]
     Active Substance: LEVOFLOXACIN
     Dosage: 750 MG, QD
     Route: 048
  2. MEDROL [Concomitant]
     Active Substance: METHYLPREDNISOLONE
     Dosage: 4 MG, UNK
     Route: 048
  3. ADVAIR HFA [Concomitant]
     Active Substance: FLUTICASONE PROPIONATE\SALMETEROL XINAFOATE
     Dosage: 1 PUFF, BID
     Route: 055
  4. SPIRIVA [Concomitant]
     Active Substance: TIOTROPIUM BROMIDE MONOHYDRATE
     Dosage: 2.5 ?G, 2 INHALER EVERY DAY FOR 15 MIN
     Route: 055
  5. ALDACTONE [Concomitant]
     Active Substance: SPIRONOLACTONE
     Dosage: 50 MG, QD
     Route: 048
  6. STIOLTO RESPIMAT [Concomitant]
     Active Substance: OLODATEROL HYDROCHLORIDE\TIOTROPIUM BROMIDE MONOHYDRATE
     Dosage: 2 PUFF EVERY DAY AT THE SAME TIME
     Route: 055
  7. LONHALA MAGNAIR [Suspect]
     Active Substance: GLYCOPYRROLATE
     Dosage: UNK
     Route: 055
  8. AMITIZA [Concomitant]
     Active Substance: LUBIPROSTONE
     Dosage: 8 ?G, BID
     Route: 048

REACTIONS (2)
  - Asthenia [Recovered/Resolved]
  - Dizziness [Recovered/Resolved]
